FAERS Safety Report 16742594 (Version 2)
Quarter: 2019Q3

REPORT INFORMATION
  Report Type: Spontaneous
  Country: DE (occurrence: DE)
  Receive Date: 20190826
  Receipt Date: 20190909
  Transmission Date: 20191005
  Serious: Yes (Other)
  Sender: FDA-Public Use
  Company Number: DE-SHIRE-DE201927279

PATIENT

DRUGS (2)
  1. SALOFALK [Concomitant]
     Indication: PRODUCT USED FOR UNKNOWN INDICATION
  2. MEZAVANT [Suspect]
     Active Substance: MESALAMINE
     Indication: COLITIS ULCERATIVE
     Dosage: 1200 MILLIGRAM, 1X/DAY:QD
     Route: 065

REACTIONS (10)
  - Arthralgia [Unknown]
  - Deafness [Unknown]
  - Hypotension [Unknown]
  - Ear pain [Unknown]
  - Haemorrhage [Unknown]
  - Secretion discharge [Unknown]
  - Ear discomfort [Unknown]
  - Fatigue [Unknown]
  - Flatulence [Unknown]
  - Drug interaction [Unknown]

NARRATIVE: CASE EVENT DATE: 2019
